FAERS Safety Report 18288815 (Version 1)
Quarter: 2020Q3

REPORT INFORMATION
  Report Type: Spontaneous
  Country: BR (occurrence: BR)
  Receive Date: 20200921
  Receipt Date: 20200921
  Transmission Date: 20201103
  Serious: Yes (Other)
  Sender: FDA-Public Use
  Company Number: BR-PFIZER INC-2020361173

PATIENT
  Age: 32 Year
  Sex: Male

DRUGS (88)
  1. ZIPRASIDONE HCL [Suspect]
     Active Substance: ZIPRASIDONE HYDROCHLORIDE
     Indication: DEPRESSION
     Dosage: 80 MG
     Dates: start: 200207, end: 200210
  2. QUETIAPINE. [Suspect]
     Active Substance: QUETIAPINE
     Indication: BIPOLAR DISORDER
  3. ARIPIPRAZOL [Concomitant]
     Active Substance: ARIPIPRAZOLE
     Dosage: 30 MG
     Dates: start: 200511
  4. DIAZEPAM. [Concomitant]
     Active Substance: DIAZEPAM
     Indication: DEPRESSION
     Dosage: 10 MG
     Dates: start: 200405, end: 200406
  5. DIAZEPAM. [Concomitant]
     Active Substance: DIAZEPAM
     Dosage: 10 MG
     Dates: start: 200505, end: 200511
  6. LITHIUM. [Concomitant]
     Active Substance: LITHIUM
     Indication: DEPRESSION
     Dosage: 1050 MG
     Dates: start: 200211, end: 200303
  7. LITHIUM. [Concomitant]
     Active Substance: LITHIUM
     Dosage: 900 MG
     Dates: start: 200412, end: 200504
  8. LAMOTRIGINE. [Concomitant]
     Active Substance: LAMOTRIGINE
     Indication: DEPRESSION
     Dosage: 100 MG
     Dates: start: 200407, end: 200408
  9. BUPROPION. [Concomitant]
     Active Substance: BUPROPION
     Dosage: 150 MG
     Dates: start: 200407, end: 200408
  10. DIVALPROEX SODIUM. [Concomitant]
     Active Substance: DIVALPROEX SODIUM
     Indication: DEPRESSION
     Dosage: 1750 MG
     Dates: start: 200304, end: 200306
  11. DIVALPROEX SODIUM. [Concomitant]
     Active Substance: DIVALPROEX SODIUM
     Dosage: 500 MG
     Dates: start: 200412, end: 200504
  12. MILNACIPRAN [Concomitant]
     Active Substance: MILNACIPRAN
     Indication: DEPRESSION
     Dosage: 150 MG (TAPERING)
     Dates: start: 200202, end: 200203
  13. BUSPIRONE [Concomitant]
     Active Substance: BUSPIRONE HYDROCHLORIDE
     Indication: DEPRESSION
     Dosage: 15 MG
     Dates: start: 200201
  14. ZIPRASIDONE HCL [Suspect]
     Active Substance: ZIPRASIDONE HYDROCHLORIDE
     Dosage: 80 MG
     Dates: start: 200304, end: 200306
  15. QUETIAPINE. [Suspect]
     Active Substance: QUETIAPINE
     Indication: DEPRESSION
     Dosage: 300 MG
     Dates: start: 200307, end: 200404
  16. DIAZEPAM. [Concomitant]
     Active Substance: DIAZEPAM
     Dosage: UNK
     Dates: start: 200511
  17. LITHIUM. [Concomitant]
     Active Substance: LITHIUM
     Dosage: 1500 MG
     Dates: start: 200304, end: 200306
  18. LITHIUM. [Concomitant]
     Active Substance: LITHIUM
     Dosage: 900 MG
     Dates: start: 200409, end: 200411
  19. AMINEPTINE [Concomitant]
     Indication: DEPRESSION
     Dosage: 100 MG
     Dates: start: 200207, end: 200210
  20. T4 [Concomitant]
     Active Substance: LEVOTHYROXINE
     Indication: DEPRESSION
     Dosage: 175 UG
     Dates: start: 200211, end: 200303
  21. LAMOTRIGINE. [Concomitant]
     Active Substance: LAMOTRIGINE
     Indication: BIPOLAR DISORDER
     Dosage: 100 MG
     Dates: start: 200405, end: 200406
  22. LAMOTRIGINE. [Concomitant]
     Active Substance: LAMOTRIGINE
     Dosage: 200 MG
     Dates: start: 200412, end: 200504
  23. OXCARBAZEPINE. [Concomitant]
     Active Substance: OXCARBAZEPINE
     Indication: BIPOLAR DISORDER
     Dosage: 1200 MG
     Dates: start: 200202, end: 200203
  24. TOPIRAMATE. [Concomitant]
     Active Substance: TOPIRAMATE
     Dosage: 250 MG
     Dates: start: 200505, end: 200511
  25. CLONAZEPAM. [Concomitant]
     Active Substance: CLONAZEPAM
     Indication: DEPRESSION
     Dosage: 4 MG
     Dates: start: 200207, end: 200210
  26. GABAPENTIN. [Concomitant]
     Active Substance: GABAPENTIN
     Indication: DEPRESSION
     Dosage: 600 MG
     Dates: start: 200207, end: 200210
  27. T4 [Concomitant]
     Active Substance: LEVOTHYROXINE
     Dosage: 200 UG
     Dates: start: 200307, end: 200404
  28. T4 [Concomitant]
     Active Substance: LEVOTHYROXINE
     Dosage: 250 UG
     Dates: start: 200505, end: 200511
  29. BUPROPION. [Concomitant]
     Active Substance: BUPROPION
     Indication: DEPRESSION
     Dosage: 150 MG
     Dates: start: 200405, end: 200406
  30. DIVALPROEX SODIUM. [Concomitant]
     Active Substance: DIVALPROEX SODIUM
     Dosage: 1000 MG
     Dates: start: 200407, end: 200408
  31. OLANZAPINE. [Concomitant]
     Active Substance: OLANZAPINE
     Indication: DEPRESSION
  32. DIAZEPAM. [Concomitant]
     Active Substance: DIAZEPAM
     Dosage: 10 MG
     Dates: start: 200412, end: 200504
  33. LITHIUM. [Concomitant]
     Active Substance: LITHIUM
     Dosage: 1050 MG
     Dates: start: 200511
  34. AMINEPTINE [Concomitant]
     Indication: BIPOLAR DISORDER
     Dosage: 100 MG
     Dates: start: 199804, end: 200206
  35. T4 [Concomitant]
     Active Substance: LEVOTHYROXINE
     Dosage: 250 UG
     Dates: start: 200407, end: 200408
  36. TOPIRAMATE. [Concomitant]
     Active Substance: TOPIRAMATE
     Dosage: 250 MG
     Dates: start: 200511
  37. CITALOPRAM [Concomitant]
     Active Substance: CITALOPRAM HYDROBROMIDE
     Indication: DEPRESSION
     Dosage: 20 MG
     Dates: start: 199804, end: 200206
  38. CLONAZEPAM. [Concomitant]
     Active Substance: CLONAZEPAM
     Dosage: 4 MG
     Dates: start: 200211, end: 200303
  39. MOCLOBEMIDE [Concomitant]
     Active Substance: MOCLOBEMIDE
     Indication: DEPRESSION
     Dosage: 900 MG
     Dates: start: 200211, end: 200303
  40. MOCLOBEMIDE [Concomitant]
     Active Substance: MOCLOBEMIDE
     Indication: BIPOLAR DISORDER
  41. FLUOXETINE [Concomitant]
     Active Substance: FLUOXETINE HYDROCHLORIDE
     Dosage: 90 MG, WEEKLY
     Dates: start: 200405, end: 200406
  42. ZIPRASIDONE HCL [Suspect]
     Active Substance: ZIPRASIDONE HYDROCHLORIDE
     Indication: BIPOLAR DISORDER
     Dosage: 80 MG
     Dates: start: 199804, end: 200206
  43. ARIPIPRAZOL [Concomitant]
     Active Substance: ARIPIPRAZOLE
     Dosage: 15 MG
     Dates: start: 200409, end: 200411
  44. DIAZEPAM. [Concomitant]
     Active Substance: DIAZEPAM
     Dosage: 10 MG
     Dates: start: 200407, end: 200408
  45. LITHIUM. [Concomitant]
     Active Substance: LITHIUM
     Indication: BIPOLAR DISORDER
     Dosage: 900 MG
     Dates: start: 200207, end: 200210
  46. LITHIUM. [Concomitant]
     Active Substance: LITHIUM
     Dosage: 1050 MG
     Dates: start: 200505, end: 200511
  47. T4 [Concomitant]
     Active Substance: LEVOTHYROXINE
     Indication: BIPOLAR DISORDER
     Dosage: 200 UG
     Dates: start: 200304, end: 200306
  48. OXCARBAZEPINE. [Concomitant]
     Active Substance: OXCARBAZEPINE
     Indication: DEPRESSION
     Dosage: 2100 MG
     Dates: start: 200207, end: 200210
  49. DIVALPROEX SODIUM. [Concomitant]
     Active Substance: DIVALPROEX SODIUM
     Dosage: 1250 MG
     Dates: start: 200405, end: 200406
  50. GABAPENTIN. [Concomitant]
     Active Substance: GABAPENTIN
     Indication: BIPOLAR DISORDER
     Dosage: 600 MG
     Dates: start: 199804, end: 200206
  51. DIAZEPAM. [Concomitant]
     Active Substance: DIAZEPAM
     Indication: BIPOLAR DISORDER
     Dosage: 10 MG
     Dates: start: 200307, end: 200404
  52. T4 [Concomitant]
     Active Substance: LEVOTHYROXINE
     Dosage: 250 UG
     Dates: start: 200412, end: 200504
  53. LAMOTRIGINE. [Concomitant]
     Active Substance: LAMOTRIGINE
     Dosage: 200 MG
     Dates: start: 200505, end: 200511
  54. TOPIRAMATE. [Concomitant]
     Active Substance: TOPIRAMATE
     Indication: DEPRESSION
     Dosage: 200 MG
     Dates: start: 200412, end: 200504
  55. CITALOPRAM [Concomitant]
     Active Substance: CITALOPRAM HYDROBROMIDE
     Indication: BIPOLAR DISORDER
     Dosage: 20 MG
     Dates: start: 200202, end: 200203
  56. DIVALPROEX SODIUM. [Concomitant]
     Active Substance: DIVALPROEX SODIUM
     Indication: BIPOLAR DISORDER
     Dosage: 1500 MG
     Dates: start: 200211, end: 200303
  57. CLONAZEPAM. [Concomitant]
     Active Substance: CLONAZEPAM
     Indication: BIPOLAR DISORDER
     Dosage: 4 MG
     Dates: start: 199804, end: 200206
  58. FLUOXETINE [Concomitant]
     Active Substance: FLUOXETINE HYDROCHLORIDE
     Indication: DEPRESSION
     Dosage: 90 MG, WEEKLY
     Dates: start: 200307, end: 200404
  59. ZIPRASIDONE HCL [Suspect]
     Active Substance: ZIPRASIDONE HYDROCHLORIDE
     Dosage: 80 MG
     Dates: start: 200211, end: 200303
  60. ARIPIPRAZOL [Concomitant]
     Active Substance: ARIPIPRAZOLE
     Indication: BIPOLAR DISORDER
     Dosage: 15 MG
     Dates: start: 200405, end: 200406
  61. ARIPIPRAZOL [Concomitant]
     Active Substance: ARIPIPRAZOLE
     Indication: DEPRESSION
     Dosage: 15 MG
     Dates: start: 200407, end: 200408
  62. ARIPIPRAZOL [Concomitant]
     Active Substance: ARIPIPRAZOLE
     Dosage: 15 MG
     Dates: start: 200412, end: 200504
  63. DIAZEPAM. [Concomitant]
     Active Substance: DIAZEPAM
     Dosage: 10 MG
     Dates: start: 200409, end: 200411
  64. LITHIUM. [Concomitant]
     Active Substance: LITHIUM
     Dosage: 1350 MG
     Dates: start: 200307, end: 200404
  65. LITHIUM. [Concomitant]
     Active Substance: LITHIUM
     Dosage: 900 MG
     Dates: start: 200407, end: 200408
  66. T4 [Concomitant]
     Active Substance: LEVOTHYROXINE
     Dosage: 200 UG
     Dates: start: 200405, end: 200406
  67. T4 [Concomitant]
     Active Substance: LEVOTHYROXINE
     Dosage: 250 UG
     Dates: start: 200511
  68. CITALOPRAM [Concomitant]
     Active Substance: CITALOPRAM HYDROBROMIDE
     Dosage: 20 MG
     Dates: start: 200207, end: 200210
  69. BUPROPION. [Concomitant]
     Active Substance: BUPROPION
     Indication: BIPOLAR DISORDER
     Dosage: 225 MG
     Dates: start: 200307, end: 200404
  70. DIVALPROEX SODIUM. [Concomitant]
     Active Substance: DIVALPROEX SODIUM
     Dosage: 1750 MG
     Dates: start: 200307, end: 200404
  71. DIVALPROEX SODIUM. [Concomitant]
     Active Substance: DIVALPROEX SODIUM
     Dosage: 1000 MG
     Dates: start: 200409, end: 200411
  72. MEMANTINE. [Concomitant]
     Active Substance: MEMANTINE
     Indication: BIPOLAR DISORDER
     Dosage: 10 MG
     Dates: start: 200511
  73. MEMANTINE. [Concomitant]
     Active Substance: MEMANTINE
     Indication: DEPRESSION
  74. BUSPIRONE [Concomitant]
     Active Substance: BUSPIRONE HYDROCHLORIDE
     Indication: BIPOLAR DISORDER
  75. FLUOXETINE [Concomitant]
     Active Substance: FLUOXETINE HYDROCHLORIDE
     Indication: BIPOLAR DISORDER
     Dosage: 30 MG
     Dates: start: 200304, end: 200306
  76. ZIPRASIDONE HCL [Suspect]
     Active Substance: ZIPRASIDONE HYDROCHLORIDE
     Dosage: 40 MG
     Dates: start: 200409, end: 200411
  77. ARIPIPRAZOL [Concomitant]
     Active Substance: ARIPIPRAZOLE
     Dosage: 30 MG
     Dates: start: 200505, end: 200511
  78. OLANZAPINE. [Concomitant]
     Active Substance: OLANZAPINE
     Indication: BIPOLAR DISORDER
     Dosage: 2.5 MG
     Dates: start: 200405, end: 200406
  79. LITHIUM. [Concomitant]
     Active Substance: LITHIUM
     Dosage: 900 MG
     Dates: start: 200405, end: 200406
  80. T4 [Concomitant]
     Active Substance: LEVOTHYROXINE
     Dosage: 250 UG
     Dates: start: 200409, end: 200411
  81. LAMOTRIGINE. [Concomitant]
     Active Substance: LAMOTRIGINE
     Dosage: 150 MG
     Dates: start: 200409, end: 200411
  82. LAMOTRIGINE. [Concomitant]
     Active Substance: LAMOTRIGINE
     Dosage: 200 MG
     Dates: start: 200511
  83. TOPIRAMATE. [Concomitant]
     Active Substance: TOPIRAMATE
     Indication: BIPOLAR DISORDER
     Dosage: UNK
     Dates: start: 200409, end: 200411
  84. MILNACIPRAN [Concomitant]
     Active Substance: MILNACIPRAN
     Indication: BIPOLAR DISORDER
     Dosage: 200 MG
     Dates: start: 200201
  85. ESCITALOPRAM [Suspect]
     Active Substance: ESCITALOPRAM OXALATE
     Indication: DEPRESSION
     Dosage: 15 MG
     Dates: start: 200407, end: 200408
  86. ESCITALOPRAM [Suspect]
     Active Substance: ESCITALOPRAM OXALATE
     Indication: BIPOLAR DISORDER
     Dosage: 5 MG
     Dates: start: 200409, end: 200501
  87. ESCITALOPRAM [Suspect]
     Active Substance: ESCITALOPRAM OXALATE
     Dosage: 15 MG
     Dates: start: 200505, end: 200511
  88. ESCITALOPRAM [Suspect]
     Active Substance: ESCITALOPRAM OXALATE
     Dosage: 15 MG
     Dates: start: 200511

REACTIONS (1)
  - Drug abuse [Unknown]
